FAERS Safety Report 21976231 (Version 3)
Quarter: 2023Q1

REPORT INFORMATION
  Report Type: Report from Study
  Country: BR (occurrence: BR)
  Receive Date: 20230210
  Receipt Date: 20230301
  Transmission Date: 20230418
  Serious: Yes (Hospitalization)
  Sender: FDA-Public Use
  Company Number: BR-002147023-NVSC2023BR028045

PATIENT
  Age: 47 Year
  Sex: Female

DRUGS (2)
  1. KISQALI [Suspect]
     Active Substance: RIBOCICLIB
     Indication: Product used for unknown indication
     Dosage: UNK
     Route: 065
  2. ZOMETA [Suspect]
     Active Substance: ZOLEDRONIC ACID
     Indication: Product used for unknown indication
     Dosage: UNK, QMO (ONCE A MONTH)
     Route: 065

REACTIONS (10)
  - Pleural effusion [Unknown]
  - Malaise [Unknown]
  - Weight decreased [Unknown]
  - Suture related complication [Unknown]
  - Impaired healing [Unknown]
  - Feeding disorder [Unknown]
  - Breast disorder [Unknown]
  - Nodule [Unknown]
  - Nausea [Recovered/Resolved]
  - Pyrexia [Unknown]

NARRATIVE: CASE EVENT DATE: 20230120
